FAERS Safety Report 16676218 (Version 1)
Quarter: 2019Q3

REPORT INFORMATION
  Report Type: Spontaneous
  Country: US (occurrence: US)
  Receive Date: 20190807
  Receipt Date: 20190807
  Transmission Date: 20191004
  Serious: No
  Sender: FDA-Public Use
  Company Number: US-AMGEN-USASP2019122788

PATIENT
  Age: 70 Year
  Sex: Female

DRUGS (1)
  1. PROLIA [Suspect]
     Active Substance: DENOSUMAB
     Indication: OSTEOPOROSIS
     Dosage: 60 MILLIGRAM
     Route: 065
     Dates: start: 20190627

REACTIONS (8)
  - Pain in extremity [Unknown]
  - Blood pressure abnormal [Unknown]
  - Arthralgia [Unknown]
  - Vision blurred [Not Recovered/Not Resolved]
  - Heart rate decreased [Unknown]
  - Musculoskeletal stiffness [Unknown]
  - Muscle spasms [Unknown]
  - Dizziness [Recovering/Resolving]

NARRATIVE: CASE EVENT DATE: 2019
